FAERS Safety Report 23658495 (Version 1)
Quarter: 2024Q1

REPORT INFORMATION
  Report Type: Report from Study
  Country: US (occurrence: US)
  Receive Date: 20240321
  Receipt Date: 20240321
  Transmission Date: 20240410
  Serious: Yes (Hospitalization, Other)
  Sender: FDA-Public Use
  Company Number: US-BAXTER-2024BAX014997

PATIENT
  Age: 69 Year
  Sex: Male
  Weight: 79.6 kg

DRUGS (12)
  1. CYCLOPHOSPHAMIDE [Suspect]
     Active Substance: CYCLOPHOSPHAMIDE
     Indication: Acute lymphocytic leukaemia
     Dosage: 150 MG/M2 EVERY 12 HRS X 6 DOSES (CYCLE 1, 3, 5, 7, DAYS 1-3)
     Route: 042
  2. MESNA [Suspect]
     Active Substance: MESNA
     Indication: Acute lymphocytic leukaemia
     Dosage: 300 MG/M2 (CYCLE 1, 3, 5, 7, DAYS 1-3)
     Route: 065
  3. METHYLPREDNISOLONE ACETATE [Suspect]
     Active Substance: METHYLPREDNISOLONE ACETATE
     Indication: Acute lymphocytic leukaemia
     Dosage: 50 MG EVERY 12 HRS X 6 DOSES (CYCLE 2, 4, 6, 8, DAYS 1-3)
     Route: 042
  4. VINCRISTINE SULFATE [Suspect]
     Active Substance: VINCRISTINE SULFATE
     Indication: Acute lymphocytic leukaemia
     Dosage: 2 MG CYCLIC (CYCLE 1, 3, 5, 7, 2 MG, DAY 1, DAY 8)
     Route: 042
  5. INOTUZUMAB OZOGAMICIN [Suspect]
     Active Substance: INOTUZUMAB OZOGAMICIN
     Indication: Acute lymphocytic leukaemia
     Dosage: 0.9 MG/M2 DURING CYCLE 1 (0.6 MG/M2 D2, 0.3 MG/M2 D8), FIRST REGIMEN
     Route: 042
     Dates: start: 20231219
  6. INOTUZUMAB OZOGAMICIN [Suspect]
     Active Substance: INOTUZUMAB OZOGAMICIN
     Dosage: 0.6 MG/M2 DURING CYCLES 2-4 (0.3 MG/M2 D2, 0.3 MG/M2 D8), SECOND REGIMEN
     Route: 042
  7. METHOTREXATE SODIUM [Suspect]
     Active Substance: METHOTREXATE SODIUM
     Indication: Acute lymphocytic leukaemia
     Dosage: 250 MG/M2 (CYCLE 2, 4, 6, 8, DAY 1), FIRST REGIMEN
     Route: 042
  8. METHOTREXATE SODIUM [Suspect]
     Active Substance: METHOTREXATE SODIUM
     Dosage: 12 MG (CYCLE 1-4, DAY 2, DAY 8), SECOND REGIMEN
     Route: 037
  9. CYTARABINE [Suspect]
     Active Substance: CYTARABINE
     Indication: Acute lymphocytic leukaemia
     Dosage: 0.5 G/M2/DOSE, CYCLE 2, 4, 6, 8, EVERY 12 HRS X 4 DOSES, DAYS 2, 3, FIRST REGIMEN
     Route: 042
  10. CYTARABINE [Suspect]
     Active Substance: CYTARABINE
     Dosage: 100 MG CYCLIC (CYCLE 1-4, DAY 2, DAY 8), SECOND REGIMEN
     Route: 037
  11. RITUXIMAB [Suspect]
     Active Substance: RITUXIMAB
     Indication: Acute lymphocytic leukaemia
     Dosage: 375 MG/M2 CYCLIC (CYCLE 1-4, DAY 2, DAY 8)
     Route: 042
  12. DEXAMETHASONE [Suspect]
     Active Substance: DEXAMETHASONE
     Indication: Acute lymphocytic leukaemia
     Dosage: 20 MG CYCLIC (IV OR PO, CYCLE 1, 3, 5, 7, DAYS 1-4, DAYS 11-14)
     Route: 065

REACTIONS (1)
  - Febrile neutropenia [Recovered/Resolved with Sequelae]

NARRATIVE: CASE EVENT DATE: 20240127
